FAERS Safety Report 6720930-5 (Version None)
Quarter: 2010Q2

REPORT INFORMATION
  Report Type: 
  Country: None (occurrence: None)
  Receive Date: 20100512
  Receipt Date: 20100504
  Transmission Date: 20101027
  Serious: No
  Sender: FDA-Public Use
  Company Number: US-JNJFOC-20100501808

PATIENT
  Sex: Male

DRUGS (3)
  1. FENTANYL-100 [Suspect]
     Indication: DRUG USE FOR UNKNOWN INDICATION
     Route: 062
  2. FENTANYL CITRATE [Suspect]
     Indication: BACK PAIN
     Route: 062
  3. DILANTIN [Suspect]
     Indication: CONVULSION
     Route: 048

REACTIONS (5)
  - DRUG DOSE OMISSION [None]
  - INCISION SITE PAIN [None]
  - PRODUCT QUALITY ISSUE [None]
  - SINUS OPERATION [None]
  - WITHDRAWAL SYNDROME [None]
